FAERS Safety Report 8774701 (Version 2)
Quarter: 2012Q4

REPORT INFORMATION
  Report Type: 
  Country: US (occurrence: US)
  Receive Date: 20120913
  Receipt Date: 20120928
  Transmission Date: 20130627
  Serious: Yes (Death)
  Sender: FDA-Public Use
  Company Number: US-009507513-1209USA002552

PATIENT
  Age: 45 Year
  Sex: Female

DRUGS (2)
  1. EMEND [Suspect]
     Indication: PROPHYLAXIS OF NAUSEA AND VOMITING
     Dosage: 150 mg, Once
  2. CISPLATIN [Concomitant]

REACTIONS (2)
  - Death [Fatal]
  - Drug ineffective [Fatal]
